FAERS Safety Report 4497648-5 (Version None)
Quarter: 2004Q4

REPORT INFORMATION
  Report Type: 
  Country: None (occurrence: None)
  Receive Date: 20041103
  Receipt Date: 20041019
  Transmission Date: 20050328
  Serious: Yes (Death)
  Sender: FDA-Public Use
  Company Number: US-JNJFOC-20041005827

PATIENT
  Age: 57 Year
  Sex: Female

DRUGS (7)
  1. DURAGESIC [Suspect]
     Indication: DRUG USE FOR UNKNOWN INDICATION
  2. ALPRAZOLAM [Concomitant]
  3. ZOLPIDEM [Concomitant]
  4. HYDROCODONE [Concomitant]
  5. PROPOXYPHENE [Concomitant]
  6. PROMETHAZINE [Concomitant]
  7. CARISOPRODOL [Concomitant]

REACTIONS (2)
  - ACCIDENTAL DEATH [None]
  - DRUG ABUSER [None]
